FAERS Safety Report 10502955 (Version 1)
Quarter: 2014Q4

REPORT INFORMATION
  Report Type: Spontaneous
  Country: BR (occurrence: BR)
  Receive Date: 20141007
  Receipt Date: 20141007
  Transmission Date: 20150528
  Serious: Yes (Other)
  Sender: FDA-Public Use
  Company Number: BR-009507513-1410BRA001673

PATIENT
  Age: 46 Year
  Sex: Female
  Weight: 55 kg

DRUGS (6)
  1. PEGINTRON [Suspect]
     Active Substance: PEGINTERFERON ALFA-2B
     Indication: HEPATITIS C
     Dosage: 100 MICROGRAM, QW
     Route: 030
     Dates: start: 201406, end: 201406
  2. RIBAVIRIN. [Concomitant]
     Active Substance: RIBAVIRIN
     Indication: HEPATITIS C
     Dosage: 500 MG, BID
     Route: 048
     Dates: start: 201406
  3. RIBAVIRIN. [Concomitant]
     Active Substance: RIBAVIRIN
     Dosage: 250 MG, QPM
     Route: 048
     Dates: start: 201409
  4. PEGINTRON [Suspect]
     Active Substance: PEGINTERFERON ALFA-2B
     Dosage: 80 MICROGRAM, QW
     Route: 065
     Dates: start: 201406
  5. RIBAVIRIN. [Concomitant]
     Active Substance: RIBAVIRIN
     Dosage: 500 MG, QAM
     Route: 048
     Dates: start: 201409
  6. VICTRELIS [Suspect]
     Active Substance: BOCEPREVIR
     Indication: HEPATITIS C
     Dosage: 800 MG, TID
     Route: 048
     Dates: start: 201407

REACTIONS (7)
  - Headache [Not Recovered/Not Resolved]
  - Rash [Recovered/Resolved]
  - Seizure [Recovered/Resolved]
  - Incorrect route of drug administration [Unknown]
  - Anaemia [Not Recovered/Not Resolved]
  - Pain [Not Recovered/Not Resolved]
  - Diarrhoea [Not Recovered/Not Resolved]

NARRATIVE: CASE EVENT DATE: 201406
